FAERS Safety Report 8302304-9 (Version None)
Quarter: 2012Q2

REPORT INFORMATION
  Report Type: 
  Country: None (occurrence: None)
  Receive Date: 20120418
  Receipt Date: 20120410
  Transmission Date: 20120825
  Serious: Yes (Hospitalization, Other)
  Sender: FDA-Public Use
  Company Number: DAV-AE-ALP-12-15

PATIENT
  Age: 23 Year
  Sex: Male

DRUGS (3)
  1. ALPRAZOLAM [Suspect]
     Dosage: ORAL
     Route: 048
  2. RISPERIDONE [Concomitant]
  3. HYDROCODONE BITARTRATE + ACETAMINOPHEN [Concomitant]

REACTIONS (3)
  - SINUS BRADYCARDIA [None]
  - INCORRECT DOSE ADMINISTERED [None]
  - ATRIOVENTRICULAR BLOCK SECOND DEGREE [None]
